FAERS Safety Report 7714310-3 (Version None)
Quarter: 2011Q3

REPORT INFORMATION
  Report Type: 
  Country: None (occurrence: None)
  Receive Date: 20110829
  Receipt Date: 20110819
  Transmission Date: 20111222
  Serious: No
  Sender: FDA-Public Use
  Company Number: US-BIOGENIDEC-2011BI032268

PATIENT
  Sex: Female

DRUGS (1)
  1. TYSABRI [Suspect]
     Indication: MULTIPLE SCLEROSIS
     Route: 042
     Dates: start: 20091203

REACTIONS (7)
  - SINUS HEADACHE [None]
  - GENERAL SYMPTOM [None]
  - INJURY [None]
  - DISTURBANCE IN SOCIAL BEHAVIOUR [None]
  - FATIGUE [None]
  - FUNGAL INFECTION [None]
  - FEELING HOT [None]
